FAERS Safety Report 24785615 (Version 1)
Quarter: 2024Q4

REPORT INFORMATION
  Report Type: Spontaneous
  Country: US (occurrence: None)
  Receive Date: 20241228
  Receipt Date: 20241228
  Transmission Date: 20250115
  Serious: Yes (Disabling)
  Sender: Public
  Company Number: None

PATIENT
  Age: 59 Year
  Sex: Female
  Weight: 69.75 kg

DRUGS (1)
  1. SEMAGLUTIDE [Suspect]
     Active Substance: SEMAGLUTIDE
     Dosage: OTHER STRENGTH : UNITS;?OTHER FREQUENCY : ONCE WEEK;?OTHER ROUTE : INJECTED IN ABDOMEN;?
     Route: 050
     Dates: start: 20241211, end: 20241211

REACTIONS (3)
  - Abdominal pain upper [None]
  - Dehydration [None]
  - Vomiting [None]

NARRATIVE: CASE EVENT DATE: 20241221
